FAERS Safety Report 18516905 (Version 6)
Quarter: 2021Q1

REPORT INFORMATION
  Report Type: Report from Study
  Country: US (occurrence: US)
  Receive Date: 20201118
  Receipt Date: 20210114
  Transmission Date: 20210419
  Serious: Yes (Other)
  Sender: FDA-Public Use
  Company Number: US-TAKEDA-2020TUS048719

PATIENT
  Age: 46 Year
  Sex: Female
  Weight: 100 kg

DRUGS (4)
  1. VEDOLIZUMAB [Suspect]
     Active Substance: VEDOLIZUMAB
     Dosage: 300 MILLIGRAM
     Route: 042
     Dates: start: 202007
  2. VEDOLIZUMAB [Suspect]
     Active Substance: VEDOLIZUMAB
     Indication: COLITIS ULCERATIVE
     Dosage: 300 MILLIGRAM, Q6WEEKS
     Route: 042
     Dates: start: 20200702
  3. CANSAAR [Concomitant]
     Dosage: UNK
  4. LIALDA [Concomitant]
     Active Substance: MESALAMINE
     Dosage: UNK

REACTIONS (21)
  - Hypersensitivity [Not Recovered/Not Resolved]
  - Off label use [Unknown]
  - Influenza like illness [Recovered/Resolved]
  - Groin pain [Not Recovered/Not Resolved]
  - Feeling abnormal [Unknown]
  - JC polyomavirus test positive [Unknown]
  - Hypoaesthesia [Not Recovered/Not Resolved]
  - Abdominal distension [Unknown]
  - Arthralgia [Not Recovered/Not Resolved]
  - Vision blurred [Not Recovered/Not Resolved]
  - Periarthritis [Unknown]
  - Central nervous system lesion [Unknown]
  - Balance disorder [Not Recovered/Not Resolved]
  - Intervertebral disc protrusion [Unknown]
  - Amnesia [Unknown]
  - Headache [Not Recovered/Not Resolved]
  - Photophobia [Not Recovered/Not Resolved]
  - Paraesthesia [Not Recovered/Not Resolved]
  - Migraine [Unknown]
  - Inflammation [Not Recovered/Not Resolved]
  - Pain in extremity [Not Recovered/Not Resolved]

NARRATIVE: CASE EVENT DATE: 202008
